FAERS Safety Report 8358235-1 (Version None)
Quarter: 2012Q2

REPORT INFORMATION
  Report Type: 
  Country: None (occurrence: None)
  Receive Date: 20120514
  Receipt Date: 20120502
  Transmission Date: 20120825
  Serious: Yes (Life-Threatening, Hospitalization)
  Sender: FDA-Public Use
  Company Number: FR-GLAXOSMITHKLINE-B0799436A

PATIENT
  Sex: Female

DRUGS (4)
  1. PRILOSEC [Concomitant]
  2. PULMICORT [Concomitant]
  3. FORADIL [Concomitant]
  4. ARIXTRA [Suspect]
     Indication: PULMONARY EMBOLISM
     Dosage: 7.5MG PER DAY
     Route: 058
     Dates: start: 20120413, end: 20120419

REACTIONS (13)
  - HYPOTENSION [None]
  - BLOOD CREATININE INCREASED [None]
  - OLIGURIA [None]
  - HAEMATOMA [None]
  - SHOCK HAEMORRHAGIC [None]
  - PERIPHERAL ARTERY ANEURYSM [None]
  - HYPERKALAEMIA [None]
  - MUSCLE HAEMORRHAGE [None]
  - VOMITING [None]
  - PELVIC HAEMATOMA [None]
  - RENAL FAILURE ACUTE [None]
  - MALAISE [None]
  - PERICARDIAL HAEMORRHAGE [None]
